FAERS Safety Report 14623354 (Version 1)
Quarter: 2018Q1

REPORT INFORMATION
  Report Type: Report from Study
  Country: CO (occurrence: CO)
  Receive Date: 20180312
  Receipt Date: 20180312
  Transmission Date: 20180509
  Serious: Yes (Hospitalization)
  Sender: FDA-Public Use
  Company Number: CO-UCBSA-2018009374

PATIENT
  Age: 35 Year
  Sex: Male

DRUGS (2)
  1. LACOSAMIDE. [Suspect]
     Active Substance: LACOSAMIDE
     Indication: EPILEPSY
     Dosage: 100 MG, 3X/DAY (TID)
     Route: 048
     Dates: start: 20140204, end: 20180111
  2. PHENOBARBITAL. [Concomitant]
     Active Substance: PHENOBARBITAL
     Indication: EPILEPSY

REACTIONS (3)
  - Intentional product misuse [Unknown]
  - Anaemia [Not Recovered/Not Resolved]
  - Generalised oedema [Not Recovered/Not Resolved]

NARRATIVE: CASE EVENT DATE: 20140204
